FAERS Safety Report 18897865 (Version 2)
Quarter: 2021Q2

REPORT INFORMATION
  Report Type: Spontaneous
  Country: US (occurrence: US)
  Receive Date: 20210216
  Receipt Date: 20210518
  Transmission Date: 20210717
  Serious: No
  Sender: FDA-Public Use
  Company Number: US-CELLTRION INC.-2021US001222

PATIENT

DRUGS (9)
  1. TRUXIMA [Suspect]
     Active Substance: RITUXIMAB-ABBS
     Dosage: 750 MG EVERY 21 DAYS
     Route: 042
     Dates: start: 20201120
  2. TRUXIMA [Suspect]
     Active Substance: RITUXIMAB-ABBS
     Dosage: 750 MG EVERY 21 DAYS
     Route: 042
     Dates: start: 20200129
  3. TRUXIMA [Suspect]
     Active Substance: RITUXIMAB-ABBS
     Dosage: 750 MG EVERY 21 DAYS
     Route: 042
     Dates: start: 20201030
  4. DEXAMETHASONE. [Concomitant]
     Active Substance: DEXAMETHASONE
     Indication: PREMEDICATION
  5. TRUXIMA [Suspect]
     Active Substance: RITUXIMAB-ABBS
     Dosage: 750 MG EVERY 21 DAYS
     Route: 042
     Dates: start: 20200108
  6. AKYNZEO [Concomitant]
     Active Substance: NETUPITANT\PALONOSETRON HYDROCHLORIDE
     Indication: PREMEDICATION
  7. TRUXIMA [Suspect]
     Active Substance: RITUXIMAB-ABBS
     Indication: NODULAR LYMPHOCYTE PREDOMINANT HODGKIN LYMPHOMA
     Dosage: 750 MG EVERY 21 DAYS
     Route: 042
     Dates: start: 20201002, end: 20201211
  8. TRUXIMA [Suspect]
     Active Substance: RITUXIMAB-ABBS
     Dosage: 750 MG EVERY 21 DAYS
     Route: 042
     Dates: start: 20210104, end: 20210201
  9. BENADRYL [Concomitant]
     Active Substance: DIPHENHYDRAMINE HYDROCHLORIDE
     Indication: PREMEDICATION

REACTIONS (2)
  - Off label use [Unknown]
  - No adverse event [Unknown]
